FAERS Safety Report 21171059 (Version 1)
Quarter: 2022Q3

REPORT INFORMATION
  Report Type: Spontaneous
  Country: US (occurrence: US)
  Receive Date: 20220804
  Receipt Date: 20220804
  Transmission Date: 20221027
  Serious: No
  Sender: FDA-Public Use
  Company Number: US-PFIZER INC-202201026360

PATIENT

DRUGS (1)
  1. PAXLOVID [Suspect]
     Active Substance: NIRMATRELVIR\RITONAVIR
     Indication: COVID-19 treatment
     Dosage: 150 MILLIGRAMS AND 100 MILLIGRAM TABS OF NIRMATRELVIR TABS 20 TIMES
     Dates: start: 20220728

REACTIONS (9)
  - Nervousness [Unknown]
  - Abdominal discomfort [Unknown]
  - Dizziness [Unknown]
  - Disorientation [Unknown]
  - Feeling abnormal [Unknown]
  - Restlessness [Unknown]
  - Nausea [Unknown]
  - Presyncope [Unknown]
  - Intentional product misuse [Unknown]

NARRATIVE: CASE EVENT DATE: 20220701
